FAERS Safety Report 12245342 (Version 1)
Quarter: 2016Q2

REPORT INFORMATION
  Report Type: Spontaneous
  Country: US (occurrence: None)
  Receive Date: 20160406
  Receipt Date: 20160406
  Transmission Date: 20160815
  Serious: No
  Sender: FDA-Public Use
  Company Number: None

PATIENT
  Sex: Female
  Weight: 183.6 kg

DRUGS (6)
  1. TOLTERODINE [Concomitant]
     Active Substance: TOLTERODINE
  2. TRIAMCINOLONE NASAL SPRAY [Concomitant]
  3. SINGULAIR [Concomitant]
     Active Substance: MONTELUKAST SODIUM
  4. CITALOPRAM [Concomitant]
     Active Substance: CITALOPRAM HYDROBROMIDE
  5. GENERIC LEVOTHYROXINE [Suspect]
     Active Substance: LEVOTHYROXINE
     Indication: HYPOTHYROIDISM
     Dosage: 112MG OR 100MCG (CURRENT DOSE IS 112MCG) DAILY PO
     Route: 048
     Dates: start: 20130613
  6. SYMBICORT [Concomitant]
     Active Substance: BUDESONIDE\FORMOTEROL FUMARATE DIHYDRATE

REACTIONS (2)
  - Rash [None]
  - Hypersensitivity [None]
